FAERS Safety Report 9210334 (Version 1)
Quarter: 2013Q2

REPORT INFORMATION
  Report Type: Report from Study
  Country: BR (occurrence: BR)
  Receive Date: 20130404
  Receipt Date: 20130404
  Transmission Date: 20140414
  Serious: Yes (Hospitalization, Other)
  Sender: FDA-Public Use
  Company Number: BR-ROCHE-725109

PATIENT
  Age: 44 Year
  Sex: Female
  Weight: 89 kg

DRUGS (17)
  1. MABTHERA [Suspect]
     Indication: SYSTEMIC LUPUS ERYTHEMATOSUS
     Dosage: INFUSION
     Route: 042
  2. MABTHERA [Suspect]
     Dosage: INTERRUPTED TREATMENT FOR 1 MONTH
     Route: 042
  3. AZATHIOPRINE [Concomitant]
     Indication: IMMUNODEFICIENCY
     Route: 065
     Dates: start: 2009, end: 20110304
  4. TYLENOL [Concomitant]
     Indication: PAIN
     Route: 065
  5. TYLENOL [Concomitant]
     Route: 065
  6. LOSARTAN [Concomitant]
     Indication: HYPERTENSION
     Route: 065
  7. LOSARTAN [Concomitant]
     Route: 065
  8. CORTISONE [Concomitant]
     Route: 065
  9. GLIFAGE [Concomitant]
     Route: 065
  10. PARACETAMOL [Concomitant]
     Route: 065
  11. AMITRIPTILINA [Concomitant]
     Route: 065
  12. CODEINE [Concomitant]
     Route: 065
  13. RANITIDINE [Concomitant]
     Route: 065
  14. ENALAPRIL [Concomitant]
     Indication: HYPERTENSION
     Route: 065
  15. ENALAPRIL [Concomitant]
     Route: 065
  16. HYDROCHLOROTHIAZIDE [Concomitant]
     Route: 065
  17. ACETYLSALICYLIC ACID [Concomitant]
     Route: 065

REACTIONS (21)
  - Proteinuria [Not Recovered/Not Resolved]
  - Dengue fever [Recovering/Resolving]
  - Pyrexia [Unknown]
  - Feeling hot [Unknown]
  - Malaise [Not Recovered/Not Resolved]
  - Lower extremity mass [Unknown]
  - Dizziness [Not Recovered/Not Resolved]
  - Somnolence [Recovered/Resolved]
  - Headache [Unknown]
  - Inappropriate schedule of drug administration [Unknown]
  - Myalgia [Unknown]
  - Local swelling [Unknown]
  - Feeling hot [Unknown]
  - Pruritus [Unknown]
  - Wound [Unknown]
  - Dyspepsia [Not Recovered/Not Resolved]
  - Vision blurred [Unknown]
  - Muscular weakness [Recovered/Resolved]
  - Pain [Recovered/Resolved]
  - Burning sensation [Not Recovered/Not Resolved]
  - Arthralgia [Recovered/Resolved]
